FAERS Safety Report 5732828-X (Version None)
Quarter: 2008Q2

REPORT INFORMATION
  Report Type: 
  Country: None (occurrence: None)
  Receive Date: 20080507
  Receipt Date: 20080507
  Transmission Date: 20081010
  Serious: Yes (Other)
  Sender: FDA-Public Use
  Company Number: None

PATIENT
  Age: 57 Year
  Sex: Male
  Weight: 85.2762 kg

DRUGS (1)
  1. FLOMAX [Suspect]
     Dosage: 1 PILL  1 TIME  PO
     Route: 048
     Dates: start: 20080505, end: 20080505

REACTIONS (6)
  - DIZZINESS [None]
  - FACE INJURY [None]
  - HYPOTENSION [None]
  - LOSS OF CONSCIOUSNESS [None]
  - MUSCLE SPASMS [None]
  - NECK INJURY [None]
